FAERS Safety Report 21226859 (Version 1)
Quarter: 2022Q3

REPORT INFORMATION
  Report Type: Spontaneous
  Country: US (occurrence: US)
  Receive Date: 20220818
  Receipt Date: 20220818
  Transmission Date: 20221027
  Serious: Yes (Other)
  Sender: FDA-Public Use
  Company Number: US-COLLEGIUM PHARMACEUTICAL, INC.-20220800119

PATIENT

DRUGS (2)
  1. BELBUCA [Suspect]
     Active Substance: BUPRENORPHINE HYDROCHLORIDE
     Indication: Lumbar radiculopathy
     Dosage: 750 MICROGRAM, UNKNOWN
     Route: 002
     Dates: start: 201911, end: 20220801
  2. OXYCODONE [Concomitant]
     Active Substance: OXYCODONE
     Indication: Product used for unknown indication
     Dosage: 5 MG, PRN (COUPLE TIMES A MONTH)
     Route: 065

REACTIONS (1)
  - Exposed bone in jaw [Unknown]
